FAERS Safety Report 15414812 (Version 1)
Quarter: 2018Q3

REPORT INFORMATION
  Report Type: Spontaneous
  Country: FR (occurrence: FR)
  Receive Date: 20180921
  Receipt Date: 20180921
  Transmission Date: 20181010
  Serious: Yes (Other)
  Sender: FDA-Public Use
  Company Number: FR-TEVA-2018-FR-956727

PATIENT
  Age: 39 Year
  Sex: Female
  Weight: 55 kg

DRUGS (1)
  1. BENDAMUSTINE HYDROCHLORIDE. [Suspect]
     Active Substance: BENDAMUSTINE HYDROCHLORIDE
     Indication: CHRONIC LYMPHOCYTIC LEUKAEMIA
     Route: 042

REACTIONS (3)
  - Neutropenia [Unknown]
  - Generalised tonic-clonic seizure [Unknown]
  - Cerebral aspergillosis [Recovered/Resolved]
